FAERS Safety Report 23951468 (Version 3)
Quarter: 2024Q2

REPORT INFORMATION
  Report Type: Spontaneous
  Country: PT (occurrence: PT)
  Receive Date: 20240607
  Receipt Date: 20240618
  Transmission Date: 20240716
  Serious: Yes (Death, Hospitalization, Other)
  Sender: FDA-Public Use
  Company Number: PT-009507513-2406PRT001599

PATIENT
  Age: 78 Year
  Sex: Male

DRUGS (2)
  1. PEMBROLIZUMAB [Suspect]
     Active Substance: PEMBROLIZUMAB
     Indication: Renal cell carcinoma stage IV
     Dosage: UNK
     Dates: start: 20230902, end: 202310
  2. AXITINIB [Suspect]
     Active Substance: AXITINIB
     Indication: Renal cell carcinoma stage IV
     Dosage: UNK
     Dates: start: 202309, end: 2023

REACTIONS (8)
  - Cardio-respiratory arrest [Fatal]
  - Dysphagia [Unknown]
  - Dysphonia [Unknown]
  - Dysarthria [Unknown]
  - Myopathy [Unknown]
  - Rhabdomyolysis [Unknown]
  - Immune-mediated myocarditis [Unknown]
  - Myositis [Unknown]

NARRATIVE: CASE EVENT DATE: 20230101
